FAERS Safety Report 5803242-3 (Version None)
Quarter: 2008Q3

REPORT INFORMATION
  Report Type: 
  Country: None (occurrence: None)
  Receive Date: 20080708
  Receipt Date: 20080626
  Transmission Date: 20090109
  Serious: Yes (Other)
  Sender: FDA-Public Use
  Company Number: ES-ELI_LILLY_AND_COMPANY-ES200806006444

PATIENT
  Age: 49 Year
  Sex: Female

DRUGS (4)
  1. CYMBALTA [Suspect]
     Indication: DEPRESSION
     Dosage: 60 MG, UNKNOWN
     Route: 048
     Dates: start: 20080606
  2. TRANKIMAZIN [Concomitant]
     Indication: ANXIETY
     Dosage: 0.5 D/F, UNKNOWN
     Route: 065
  3. OMEPRAZOLE [Concomitant]
     Dosage: UNK, UNKNOWN
     Route: 065
  4. SERC /00141802/ [Concomitant]
     Indication: VERTIGO
     Dosage: UNK, UNKNOWN
     Route: 065

REACTIONS (6)
  - BALANCE DISORDER [None]
  - DIZZINESS [None]
  - INFLUENZA LIKE ILLNESS [None]
  - MALAISE [None]
  - NAUSEA [None]
  - PYREXIA [None]
